FAERS Safety Report 6984052-0 (Version None)
Quarter: 2010Q3

REPORT INFORMATION
  Report Type: 
  Country: None (occurrence: None)
  Receive Date: 20100915
  Receipt Date: 20090518
  Transmission Date: 20110219
  Serious: No
  Sender: FDA-Public Use
  Company Number: US-WYE-H09398109

PATIENT
  Age: 57 Year
  Sex: Female
  Weight: 56.3 kg

DRUGS (2)
  1. ADVIL LIQUI-GELS [Suspect]
     Indication: TOOTHACHE
     Dosage: 2 TO 3 LIQUI-GELS AS NEEDED
     Route: 048
     Dates: start: 20080801
  2. ADVIL LIQUI-GELS [Suspect]
     Indication: PAIN

REACTIONS (2)
  - COELIAC DISEASE [None]
  - CONDITION AGGRAVATED [None]
